FAERS Safety Report 8621744-1 (Version None)
Quarter: 2012Q3

REPORT INFORMATION
  Report Type: 
  Country: None (occurrence: None)
  Receive Date: 20120821
  Receipt Date: 20120821
  Transmission Date: 20120928
  Serious: Yes (Life-Threatening)
  Sender: FDA-Public Use
  Company Number: None

PATIENT
  Age: 59 Year
  Sex: Male
  Weight: 76.295 kg

DRUGS (3)
  1. LISINOPRIL [Suspect]
     Indication: HYPERTENSION
     Dosage: 40 MG, EVERY DAY, PO
     Route: 048
     Dates: start: 20110810, end: 20120716
  2. VANCOMYCIN [Suspect]
     Indication: INFECTION PROPHYLAXIS
     Dosage: 1500 MG
     Dates: start: 20120615, end: 20120617
  3. VANCOMYCIN [Suspect]
     Indication: SURGERY
     Dosage: 1500 MG
     Dates: start: 20120615, end: 20120617

REACTIONS (4)
  - OSTEOMYELITIS [None]
  - DIABETIC NEUROPATHIC ULCER [None]
  - TOE AMPUTATION [None]
  - ANGIOEDEMA [None]
